FAERS Safety Report 9265592 (Version 3)
Quarter: 2013Q2

REPORT INFORMATION
  Report Type: Spontaneous
  Country: JP (occurrence: JP)
  Receive Date: 20130501
  Receipt Date: 20130602
  Transmission Date: 20140414
  Serious: Yes (Life-Threatening)
  Sender: FDA-Public Use
  Company Number: JP-BRISTOL-MYERS SQUIBB COMPANY-18833236

PATIENT
  Age: 97 Year
  Sex: Female

DRUGS (8)
  1. ELIQUIS [Suspect]
     Indication: ATRIAL FIBRILLATION
     Dosage: 26MAY2013
     Route: 048
     Dates: start: 201303, end: 20130526
  2. ZOSYN [Concomitant]
     Route: 041
  3. DIFLORASONE DIACETATE [Concomitant]
     Route: 048
  4. DEPAKENE [Concomitant]
     Route: 048
     Dates: end: 20130526
  5. TAKEPRON [Concomitant]
     Route: 048
     Dates: end: 20130526
  6. GLUCONSAN-K [Concomitant]
     Route: 048
     Dates: end: 20130526
  7. DOGMATYL [Concomitant]
     Route: 048
     Dates: end: 20130526
  8. CEFTRIAXONE [Concomitant]
     Route: 042

REACTIONS (1)
  - Sepsis [Not Recovered/Not Resolved]
